FAERS Safety Report 25326440 (Version 1)
Quarter: 2025Q2

REPORT INFORMATION
  Report Type: Report from Study
  Country: CA (occurrence: CA)
  Receive Date: 20250516
  Receipt Date: 20250516
  Transmission Date: 20250717
  Serious: Yes (Other)
  Sender: ALEXION PHARMACEUTICALS
  Company Number: CA-AstraZeneca-CH-00845031A

PATIENT

DRUGS (15)
  1. CAPIVASERTIB [Suspect]
     Active Substance: CAPIVASERTIB
     Indication: Breast cancer metastatic
     Dosage: 400 MILLIGRAM, BID
  2. FULVESTRANT [Suspect]
     Active Substance: FULVESTRANT
     Route: 065
  3. FULVESTRANT [Suspect]
     Active Substance: FULVESTRANT
  4. PREDNISONE [Concomitant]
     Active Substance: PREDNISONE
     Route: 065
  5. AMLODIPINE [Concomitant]
     Active Substance: AMLODIPINE BESYLATE
  6. APIXABAN [Concomitant]
     Active Substance: APIXABAN
  7. CANDESARTAN [Concomitant]
     Active Substance: CANDESARTAN
  8. EZETIMIBE [Concomitant]
     Active Substance: EZETIMIBE
  9. ALLOPURINOL [Concomitant]
     Active Substance: ALLOPURINOL
  10. ACIDOPHILUS [Concomitant]
     Active Substance: LACTOBACILLUS ACIDOPHILUS
  11. TOLTERODINE [Concomitant]
     Active Substance: TOLTERODINE
  12. CALCIUM [Concomitant]
     Active Substance: CALCIUM
  13. VITAMIN D [Concomitant]
     Active Substance: VITAMIN D NOS
  14. ZINC [Concomitant]
     Active Substance: ZINC
  15. OMEGA 3 [Concomitant]
     Active Substance: CAPSAICIN
     Indication: Breast cancer metastatic
     Dosage: 400 MILLIGRAM, BID

REACTIONS (5)
  - Nausea [Recovering/Resolving]
  - Abdominal discomfort [Unknown]
  - Gait disturbance [Unknown]
  - Dysphagia [Unknown]
  - Abdominal pain upper [Unknown]
